FAERS Safety Report 22628153 (Version 1)
Quarter: 2023Q2

REPORT INFORMATION
  Report Type: Report from Study
  Country: CA (occurrence: CA)
  Receive Date: 20230622
  Receipt Date: 20230622
  Transmission Date: 20230721
  Serious: Yes (Other)
  Sender: FDA-Public Use
  Company Number: CA-CELLTRION INC.-2023CA012592

PATIENT

DRUGS (1)
  1. TRUXIMA [Suspect]
     Active Substance: RITUXIMAB-ABBS
     Indication: Myasthenia gravis
     Dosage: 1000 MG, Q2WEEKS X 2 DOSES (QUANTITY: 4X500MG VIALS = 2000 MG)

REACTIONS (3)
  - Myasthenia gravis [Unknown]
  - Drug effective for unapproved indication [Unknown]
  - Off label use [Unknown]
